FAERS Safety Report 4419839-1 (Version None)
Quarter: 2004Q2

REPORT INFORMATION
  Report Type: 
  Country: None (occurrence: None)
  Receive Date: 20040622
  Receipt Date: 20031023
  Transmission Date: 20050107
  Serious: Yes (Disabling)
  Sender: FDA-Public Use
  Company Number: 349995

PATIENT
  Age: 71 Year
  Sex: Male
  Weight: 80.7 kg

DRUGS (1)
  1. XELODA [Suspect]
     Dosage: 2000 MG DAILY ORAL
     Route: 048
     Dates: start: 20030926, end: 20031009

REACTIONS (6)
  - BLOOD ALBUMIN DECREASED [None]
  - DIARRHOEA [None]
  - OEDEMA PERIPHERAL [None]
  - PENILE SWELLING [None]
  - SCROTAL SWELLING [None]
  - SWELLING [None]
